FAERS Safety Report 6397510-7 (Version None)
Quarter: 2009Q4

REPORT INFORMATION
  Report Type: 
  Country: None (occurrence: None)
  Receive Date: 20091012
  Receipt Date: 20080624
  Transmission Date: 20100525
  Serious: Yes (Other)
  Sender: FDA-Public Use
  Company Number: US-BAYER-US-2007-011016

PATIENT

DRUGS (2)
  1. MAGNEVIST [Suspect]
     Indication: DRUG USE FOR UNKNOWN INDICATION
     Dosage: TOTAL DAILY DOSE: 40 ML  UNIT DOSE: 40 ML
     Dates: start: 20011026, end: 20011026
  2. OMNISCAN [Concomitant]
     Indication: DRUG USE FOR UNKNOWN INDICATION
     Dates: start: 20020919, end: 20020919

REACTIONS (1)
  - NEPHROGENIC SYSTEMIC FIBROSIS [None]
